FAERS Safety Report 5073634-1 (Version None)
Quarter: 2006Q3

REPORT INFORMATION
  Report Type: 
  Country: None (occurrence: None)
  Receive Date: 20060803
  Receipt Date: 20060725
  Transmission Date: 20061208
  Serious: Yes (Other)
  Sender: FDA-Public Use
  Company Number: 145226USA

PATIENT
  Age: 50 Year
  Sex: Female

DRUGS (1)
  1. TIZANIDINE HCL [Suspect]
     Dates: start: 20050101, end: 20050801

REACTIONS (2)
  - RETINAL HAEMORRHAGE [None]
  - VISION BLURRED [None]
